FAERS Safety Report 7536645-X (Version None)
Quarter: 2011Q2

REPORT INFORMATION
  Report Type: 
  Country: None (occurrence: None)
  Receive Date: 20110609
  Receipt Date: 20110524
  Transmission Date: 20111010
  Serious: Yes (Hospitalization)
  Sender: FDA-Public Use
  Company Number: A0784183A

PATIENT
  Age: 46 Year
  Sex: Male
  Weight: 104.5 kg

DRUGS (5)
  1. AVANDIA [Suspect]
     Indication: DIABETES MELLITUS
     Dosage: 8MG PER DAY
     Route: 048
     Dates: start: 20020101, end: 20050826
  2. ZOCOR [Concomitant]
  3. BENICAR [Concomitant]
  4. INSULIN [Concomitant]
  5. LIPITOR [Concomitant]

REACTIONS (3)
  - CORONARY ARTERY OCCLUSION [None]
  - ANGINA UNSTABLE [None]
  - MYOCARDIAL ISCHAEMIA [None]
